FAERS Safety Report 7552892-5 (Version None)
Quarter: 2011Q2

REPORT INFORMATION
  Report Type: 
  Country: None (occurrence: None)
  Receive Date: 20110616
  Receipt Date: 20110310
  Transmission Date: 20111010
  Serious: No
  Sender: FDA-Public Use
  Company Number: US-ASTRAZENECA-2011SE13931

PATIENT
  Age: 57 Year
  Sex: Female
  Weight: 45.4 kg

DRUGS (6)
  1. PERCOCET [Concomitant]
  2. FASLODEX [Suspect]
     Route: 030
     Dates: start: 20110307
  3. FEMARA [Concomitant]
  4. MEGACE [Concomitant]
  5. FASLODEX [Suspect]
     Route: 030
     Dates: start: 20110201
  6. FASLODEX [Suspect]
     Indication: BREAST CANCER
     Route: 030
     Dates: start: 20110201

REACTIONS (10)
  - ASCITES [None]
  - EATING DISORDER [None]
  - DYSPNOEA [None]
  - JOINT SWELLING [None]
  - HEADACHE [None]
  - NAUSEA [None]
  - FATIGUE [None]
  - INJECTION SITE PAIN [None]
  - OEDEMA PERIPHERAL [None]
  - ASTHENIA [None]
